FAERS Safety Report 11540528 (Version 1)
Quarter: 2015Q3

REPORT INFORMATION
  Report Type: Spontaneous
  Country: US (occurrence: US)
  Receive Date: 20150923
  Receipt Date: 20150923
  Transmission Date: 20151125
  Serious: No
  Sender: FDA-Public Use
  Company Number: US-BEH-2015049105

PATIENT
  Sex: Female
  Weight: 66 kg

DRUGS (15)
  1. PRIVIGEN [Suspect]
     Active Substance: HUMAN IMMUNOGLOBULIN G
     Route: 042
  2. EPIPEN [Concomitant]
     Active Substance: EPINEPHRINE
  3. FLUTICASONE [Concomitant]
     Active Substance: FLUTICASONE\FLUTICASONE PROPIONATE
  4. ACIDOPHILUS [Concomitant]
     Active Substance: LACTOBACILLUS ACIDOPHILUS
  5. SUDAFED [Concomitant]
     Active Substance: PSEUDOEPHEDRINE HYDROCHLORIDE
  6. AMOXICILLIN. [Concomitant]
     Active Substance: AMOXICILLIN
  7. DIPHENHYDRAMINE. [Concomitant]
     Active Substance: DIPHENHYDRAMINE
  8. VITAMIN C [Concomitant]
     Active Substance: ASCORBIC ACID
  9. NORMAL SALINE [Concomitant]
     Active Substance: SODIUM CHLORIDE
  10. PRIVIGEN [Suspect]
     Active Substance: HUMAN IMMUNOGLOBULIN G
     Indication: IMMUNODEFICIENCY
     Route: 042
  11. TYLENOL 8 HR [Concomitant]
     Active Substance: ACETAMINOPHEN
  12. MULTIVITAMINS [Concomitant]
     Active Substance: VITAMINS
  13. BACTRIM [Concomitant]
     Active Substance: SULFAMETHOXAZOLE\TRIMETHOPRIM
  14. MUCINEX [Concomitant]
     Active Substance: GUAIFENESIN
  15. POTASSIUM GLUCONATE [Concomitant]
     Active Substance: POTASSIUM GLUCONATE

REACTIONS (1)
  - Herpes zoster [Unknown]
